FAERS Safety Report 9676902 (Version 2)
Quarter: 2013Q4

REPORT INFORMATION
  Report Type: Report from Study
  Country: RS (occurrence: RS)
  Receive Date: 20131107
  Receipt Date: 20131107
  Transmission Date: 20140711
  Serious: Yes (Other)
  Sender: FDA-Public Use
  Company Number: RS-ROCHE-1286681

PATIENT
  Sex: 0

DRUGS (4)
  1. BEVACIZUMAB [Suspect]
     Indication: COLORECTAL CANCER METASTATIC
     Dosage: FOLFOX4 REGIMEN: 5 MG/KG AND OXFL MOD.MAYO REGIMEN: 7 MG/KG
     Route: 042
  2. OXALIPLATIN [Suspect]
     Indication: COLORECTAL CANCER METASTATIC
     Dosage: FOLFOX4 REGIMEN: DAY 1: 85 MG/M2 AND OXFL MOD.MAYO REGIMEN: DAY 1: 130 MG/M2
     Route: 042
  3. FOLINIC ACID [Suspect]
     Indication: COLORECTAL CANCER METASTATIC
     Route: 042
  4. FLUOROURACIL [Suspect]
     Indication: COLORECTAL CANCER METASTATIC
     Route: 042

REACTIONS (19)
  - Hypertension [Unknown]
  - Anaemia [Unknown]
  - Leukopenia [Unknown]
  - Neutropenia [Unknown]
  - Urticaria [Unknown]
  - Dyspnoea [Unknown]
  - Epistaxis [Unknown]
  - Haemoptysis [Unknown]
  - Melaena [Unknown]
  - Nausea [Unknown]
  - Diarrhoea [Unknown]
  - Vertigo [Unknown]
  - Pyrexia [Unknown]
  - Constipation [Unknown]
  - Neuropathy peripheral [Unknown]
  - Fatigue [Unknown]
  - Vomiting [Unknown]
  - Rash [Unknown]
  - Thrombocytopenia [Unknown]
